FAERS Safety Report 4268129-9 (Version None)
Quarter: 2004Q1

REPORT INFORMATION
  Report Type: 
  Country: None (occurrence: None)
  Receive Date: 20040109
  Receipt Date: 20040109
  Transmission Date: 20041129
  Serious: Yes (Life-Threatening, Hospitalization, Disabling, Other)
  Sender: FDA-Public Use
  Company Number: None

PATIENT
  Age: 45 Year
  Sex: Female
  Weight: 92.9874 kg

DRUGS (1)
  1. PREDNISONE [Suspect]
     Dates: start: 20021101, end: 20021127

REACTIONS (2)
  - DIABETES MELLITUS [None]
  - REFUSAL OF TREATMENT BY PATIENT [None]
